FAERS Safety Report 6035693-9 (Version None)
Quarter: 2009Q1

REPORT INFORMATION
  Report Type: 
  Country: None (occurrence: None)
  Receive Date: 20090113
  Receipt Date: 20090105
  Transmission Date: 20090719
  Serious: Yes (Hospitalization)
  Sender: FDA-Public Use
  Company Number: US-BIOGENIDEC-2008BI033563

PATIENT
  Age: 21 Year
  Sex: Female

DRUGS (2)
  1. AVONEX [Suspect]
     Indication: MULTIPLE SCLEROSIS
     Route: 030
     Dates: start: 20030507, end: 20030801
  2. AVONEX [Suspect]
     Route: 030
     Dates: start: 20040501, end: 20060701

REACTIONS (3)
  - DRUG EXPOSURE DURING PREGNANCY [None]
  - FALL [None]
  - GAIT DISTURBANCE [None]
